FAERS Safety Report 10254718 (Version 1)
Quarter: 2014Q2

REPORT INFORMATION
  Report Type: Spontaneous
  Country: US (occurrence: US)
  Receive Date: 20140624
  Receipt Date: 20140624
  Transmission Date: 20141212
  Serious: No
  Sender: FDA-Public Use
  Company Number: US-ASTRAZENECA-2014SE44161

PATIENT
  Age: 90 Year
  Sex: Female

DRUGS (1)
  1. SEROQUEL [Suspect]
     Indication: DELIRIUM
     Route: 048

REACTIONS (4)
  - Panic attack [Unknown]
  - Anxiety [Unknown]
  - Drug withdrawal syndrome [Unknown]
  - Off label use [Unknown]
